FAERS Safety Report 4434987-8 (Version None)
Quarter: 2004Q3

REPORT INFORMATION
  Report Type: 
  Country: None (occurrence: None)
  Receive Date: 20040826
  Receipt Date: 20040816
  Transmission Date: 20050211
  Serious: No
  Sender: FDA-Public Use
  Company Number: 2004UW17336

PATIENT
  Age: 41 Year
  Sex: Male

DRUGS (5)
  1. CRESTOR [Suspect]
     Dosage: 20 MG DAILY PO
     Route: 048
  2. GRAPEFRUIT JUICE [Suspect]
     Dosage: 3 DF DAILY
  3. NEPHRIL [Concomitant]
  4. MS CONTIN [Concomitant]
  5. STEMETIL ^SPECIA^ [Concomitant]

REACTIONS (7)
  - BLOOD CREATINE PHOSPHOKINASE INCREASED [None]
  - CARDIAC FAILURE CONGESTIVE [None]
  - FATIGUE [None]
  - FOOD INTERACTION [None]
  - LIVER FUNCTION TEST ABNORMAL [None]
  - OEDEMA PERIPHERAL [None]
  - PROTEIN TOTAL DECREASED [None]
